FAERS Safety Report 7389822-5 (Version None)
Quarter: 2011Q1

REPORT INFORMATION
  Report Type: 
  Country: None (occurrence: None)
  Receive Date: 20110323
  Receipt Date: 20110310
  Transmission Date: 20110831
  Serious: Yes (Other)
  Sender: FDA-Public Use
  Company Number: 2011SP011151

PATIENT
  Age: 44 Year
  Sex: Male

DRUGS (4)
  1. DULERA TABLET [Suspect]
     Indication: CHRONIC OBSTRUCTIVE PULMONARY DISEASE
     Dosage: 200 MCG;BID;INH
     Route: 055
  2. SIMVASTATIN [Concomitant]
  3. FORADIL [Concomitant]
  4. ASMANEX TWISTHALER [Concomitant]

REACTIONS (2)
  - PHARYNGEAL INFLAMMATION [None]
  - OFF LABEL USE [None]
